FAERS Safety Report 15370793 (Version 3)
Quarter: 2022Q3

REPORT INFORMATION
  Report Type: Spontaneous
  Country: GB (occurrence: GB)
  Receive Date: 20180911
  Receipt Date: 20220812
  Transmission Date: 20221027
  Serious: Yes (Death, Hospitalization, Congenital Anomaly, Other)
  Sender: FDA-Public Use
  Company Number: GB-EMA-DD-20180827-KSEVHUMANWT-124609

PATIENT
  Sex: Male

DRUGS (29)
  1. EMTRICITABINE\TENOFOVIR DISOPROXIL FUMARATE [Suspect]
     Active Substance: EMTRICITABINE\TENOFOVIR DISOPROXIL FUMARATE
     Indication: HIV infection
     Dosage: 1 DOSAGE FORMS DAILY; MATERNAL DOSE: 1 TABLET/CAPSULE, QD , DURATION : 4 MONTHS
     Route: 064
     Dates: start: 20171006, end: 20180205
  2. EMTRICITABINE\TENOFOVIR DISOPROXIL FUMARATE [Suspect]
     Active Substance: EMTRICITABINE\TENOFOVIR DISOPROXIL FUMARATE
     Indication: Foetal exposure during pregnancy
  3. METFORMIN [Suspect]
     Active Substance: METFORMIN HYDROCHLORIDE
     Indication: Foetal exposure during pregnancy
     Route: 064
  4. EFAVIRENZ [Suspect]
     Active Substance: EFAVIRENZ
     Indication: Foetal exposure during pregnancy
     Dosage: 1 DOSAGE FORMS DAILY; MATERNAL DOSE: 1 UG/LITRE, QD (1 TABLET/CAPSULE)
     Route: 064
     Dates: start: 20171006, end: 20180205
  5. EFAVIRENZ [Suspect]
     Active Substance: EFAVIRENZ
     Indication: HIV infection
     Dosage: 1 DOSAGE FORMS DAILY; MATERNAL DOSE: 1 DOSAGE FORM, QD , ADDITIONAL INFO: OFF LABEL USE
     Dates: start: 20180205
  6. FOLIC ACID [Suspect]
     Active Substance: FOLIC ACID
     Indication: Supplementation therapy
     Dosage: MATERNAL DOSE: UNK, FOLATE
     Route: 065
  7. FOLIC ACID [Suspect]
     Active Substance: FOLIC ACID
     Indication: Foetal exposure during pregnancy
     Dosage: MATERNAL DOSE: UNK, SODIUM FOLATE
     Route: 065
  8. FOLIC ACID [Suspect]
     Active Substance: FOLIC ACID
     Dosage: 1 DOSAGE FORMS DAILY; (MATERNAL DOSE: 1 DF, QD (1 TABLET/CAPSULE, DAILY),THERAPY START DATE : ASKU,
  9. LAMIVUDINE [Suspect]
     Active Substance: LAMIVUDINE
     Indication: Foetal exposure during pregnancy
     Dosage: MATERNAL DOSE: 300 MG ORAL
     Route: 048
     Dates: start: 20000901, end: 20100610
  10. VITAMIN B12 [Suspect]
     Active Substance: CYANOCOBALAMIN
     Indication: Foetal exposure during pregnancy
     Dosage: MATERNAL DOSE: UNK
     Route: 065
  11. TENOFOVIR [Suspect]
     Active Substance: TENOFOVIR
     Indication: Foetal exposure during pregnancy
     Dosage: 300 MILLIGRAM DAILY; MATERNAL DOSE: 300 MG, QD
     Route: 065
     Dates: start: 20100610
  12. NEVIRAPINE [Suspect]
     Active Substance: NEVIRAPINE
     Indication: Foetal exposure during pregnancy
     Dosage: MATERNAL EXPOSURE,FREQUENCY TIME : 1 DAY,DURATION : 526 DAYS,UNIT DOSE :  400MG
     Route: 065
     Dates: start: 20090101, end: 20100610
  13. TRUVADA [Suspect]
     Active Substance: EMTRICITABINE\TENOFOVIR DISOPROXIL FUMARATE
     Indication: HIV infection
     Dosage: 1 DOSAGE FORMS DAILY; MATERNAL DOSE: 1 UG/LITRE, QD (1 TABLET/CAPSULE
     Route: 064
     Dates: start: 20171006, end: 20180205
  14. TRUVADA [Suspect]
     Active Substance: EMTRICITABINE\TENOFOVIR DISOPROXIL FUMARATE
     Indication: Foetal exposure during pregnancy
     Dosage: 1 DOSAGE FORMS DAILY; MATERNAL DOSE: 1 DOSAGE FORM, QD
     Route: 064
     Dates: start: 20180205
  15. INSULIN ASPART [Suspect]
     Active Substance: INSULIN ASPART
     Indication: Foetal exposure during pregnancy
     Dosage: ADDITIONAL INFORMATION : OFF LABEL USE, DURATION 123 DAYS
     Route: 064
  16. LABETALOL [Suspect]
     Active Substance: LABETALOL\LABETALOL HYDROCHLORIDE
     Indication: Foetal exposure during pregnancy
     Dosage: UNK (MATERNAL DOSE: UNKNOWN)
     Route: 064
  17. LOPINAVIR [Suspect]
     Active Substance: LOPINAVIR
     Indication: Foetal exposure during pregnancy
     Dosage: THERAPY END DATE : ASKU,MATERNAL DOSE: UNK
     Route: 065
     Dates: start: 20100610
  18. INSULIN ASPART [Suspect]
     Active Substance: INSULIN ASPART
     Indication: Maternal exposure timing unspecified
     Route: 065
  19. EFAVIRENZ [Suspect]
     Active Substance: EFAVIRENZ
     Indication: Maternal exposure timing unspecified
     Dosage: 1 DOSAGE FORMS DAILY; MATERNAL DOSE: 1 DOSAGE FORM, QD (1 TABLET/CAPSULE, DAILY)
     Route: 065
     Dates: start: 20171006
  20. KALETRA [Suspect]
     Active Substance: LOPINAVIR\RITONAVIR
     Indication: Foetal exposure during pregnancy
     Dosage: MATERNAL DOSE: UNK
     Route: 065
     Dates: start: 20100610
  21. EMTRICITABINE [Suspect]
     Active Substance: EMTRICITABINE
     Indication: Foetal exposure during pregnancy
     Dosage: 1 DOSAGE FORMS DAILY; MATERNAL DOSE: 1 DOSAGE FORM, QD
     Route: 065
     Dates: start: 20180205
  22. CYANOCOBALAMIN [Suspect]
     Active Substance: CYANOCOBALAMIN
     Indication: Product used for unknown indication
     Dosage: UNK, (MATERNAL DOSE: UNK), FREQUENCY TIME : 1 DAY
     Route: 065
  23. ISENTRESS [Suspect]
     Active Substance: RALTEGRAVIR POTASSIUM
     Indication: Foetal exposure during pregnancy
     Dosage: 3200 MILLIGRAM DAILY; MATERNAL DOSE: 3200 MG, QD (800 MILLIGRAM, QID)
     Route: 065
     Dates: start: 20180610
  24. LOPINAVIR\RITONAVIR [Suspect]
     Active Substance: LOPINAVIR\RITONAVIR
     Indication: Foetal exposure during pregnancy
     Dosage: MATERNAL DOSE: UNK
     Route: 065
     Dates: start: 20100610
  25. LOPINAVIR\RITONAVIR [Suspect]
     Active Substance: LOPINAVIR\RITONAVIR
     Dosage: MATERNAL DOSE: UNK
     Route: 065
     Dates: start: 20200610
  26. LOPINAVIR\RITONAVIR [Suspect]
     Active Substance: LOPINAVIR\RITONAVIR
     Dosage: MATERNAL DOSE: UNK,THERAPY START DATE : ASKU
     Route: 065
     Dates: end: 20100610
  27. RITONAVIR [Suspect]
     Active Substance: RITONAVIR
     Indication: Product used for unknown indication
     Dosage: MATERNAL DOSE: UNK,THERAPY START DATE : ASKU, THERAPY END DATE : ASKU
     Route: 065
  28. ZIDOVUDINE [Suspect]
     Active Substance: ZIDOVUDINE
     Indication: Foetal exposure during pregnancy
     Dosage: 800 MILLIGRAM DAILY; MATERNAL DOSE: 800 MG, QD, THERAPY END DATE : ASKU
     Route: 065
     Dates: start: 20100610
  29. ZIDOVUDINE [Suspect]
     Active Substance: ZIDOVUDINE
     Dosage: 600 MILLIGRAM DAILY; MATERNAL DOSE: 600 MG, QD
     Route: 048
     Dates: start: 20090110, end: 20100610

REACTIONS (8)
  - Trisomy 18 [Fatal]
  - Foetal exposure during pregnancy [Fatal]
  - Cleft lip and palate [Fatal]
  - Hydrops foetalis [Fatal]
  - Foetal exposure during pregnancy [Fatal]
  - Ultrasound antenatal screen [Fatal]
  - Abortion spontaneous [Unknown]
  - Off label use [Unknown]

NARRATIVE: CASE EVENT DATE: 20171006
